FAERS Safety Report 20845101 (Version 1)
Quarter: 2022Q2

REPORT INFORMATION
  Report Type: Report from Study
  Country: GB (occurrence: GB)
  Receive Date: 20220518
  Receipt Date: 20220518
  Transmission Date: 20220721
  Serious: Yes (Hospitalization, Other)
  Sender: FDA-Public Use
  Company Number: GB-CELLTRION HEALTHCARE HUNGARY KFT-2020GB018181

PATIENT
  Sex: Female

DRUGS (261)
  1. DOCETAXEL [Suspect]
     Active Substance: DOCETAXEL
     Indication: HER2 positive breast cancer
     Dosage: 150 MG, Q3W (FROM 21 APR 2015), UNIT DOSE : 150 MG , FREQUENCY : 1, FREQUENCY TIME : 3 WEEKS, THERAP
     Route: 042
     Dates: start: 20150421, end: 20150421
  2. DOCETAXEL [Suspect]
     Active Substance: DOCETAXEL
     Indication: Breast cancer metastatic
     Dosage: 150 MG, TIW (EVERY 3 WEEKS), UNIT DOSE - 150 MILLIGRAM , DURATION  - 1 DAY,FREQUENCY TIME : 3 WEEKS
     Route: 042
     Dates: start: 20150421, end: 20150421
  3. DOCETAXEL [Suspect]
     Active Substance: DOCETAXEL
     Indication: Breast cancer
     Dosage: 120 MG, EVERY 3 WEEKS, UNIT DOSE - 120 MILLIGRAM , DURATION  - 85 DAYS, FREQUENCY TIME : 3 WEEKS
     Route: 042
     Dates: start: 20150512, end: 20150804
  4. DOCETAXEL [Suspect]
     Active Substance: DOCETAXEL
     Indication: Breast cancer female
     Dosage: 150 MG, Q2WK/EVERY 2 WEEKS,UNIT DOSE - 150 MILLIGRAM ,FREQUENCY -1 FREQUENCY TIME  - 2 WEEKS  DURATI
     Route: 042
     Dates: start: 20150421, end: 20150421
  5. DOCETAXEL [Suspect]
     Active Substance: DOCETAXEL
     Indication: Breast cancer metastatic
     Dosage: 150 MG, TIW (EVERY 3 WEEKS), UNIT DOSE - 150 MILLIGRAM , DURATION  - 1 DAY , FREQUENCY TIME : 3 WEEK
     Route: 042
     Dates: start: 20150421, end: 20150421
  6. DOCETAXEL [Suspect]
     Active Substance: DOCETAXEL
     Indication: Breast cancer
     Dosage: 120 MG, EVERY 3 WEEKS (CUMULATIVE DOSE TO FIRST REACTION: 125.71429 MG),UNIT DOSE - 120 MILLIGRAM ,
     Route: 042
     Dates: start: 20150512, end: 20150804
  7. DOCETAXEL [Suspect]
     Active Substance: DOCETAXEL
     Dosage: 120 MG, EVERY 3 WEEKS (DOSE FORM: 16), UNIT DOSE: 120 MG, FREQUENCY TIME: 3 WEEKS, DURATION : 1 DAYS
     Route: 042
     Dates: start: 20150804, end: 20150804
  8. DOCETAXEL [Suspect]
     Active Substance: DOCETAXEL
     Dosage: 150 MG, QOW (DOSE FORM: 16) UNIT DOSE - 150 MILLIGRAM , FREQUENCY  -1 FREQUENCY TIME  - 2WEEKS ,DURA
     Route: 042
     Dates: start: 20150421, end: 20150421
  9. DOCETAXEL [Suspect]
     Active Substance: DOCETAXEL
     Dosage: 150 MG, EVERY 3 WEEKS, UNIT DOSE - 150 MILLIGRAM , DURATION  - 1 DAY,FREQUENCY TIME  3 WEEKS
     Route: 042
     Dates: start: 20150421, end: 20150421
  10. DOCETAXEL [Suspect]
     Active Substance: DOCETAXEL
     Dosage: 150 MG EVERY 3 WEEKS; 150 MG, TIW , UNIT DOSE - 150 MILLIGRAM , DURATION  - 1 DAY, FREQUENCY TIME: 3
     Route: 042
     Dates: start: 20150421, end: 20150421
  11. DOCETAXEL [Suspect]
     Active Substance: DOCETAXEL
     Dosage: 150 MG, Q2WK/EVERY 2 WEEKS, UNIT DOSE - 150 MILLIGRAM , DURATION  - 1 DAY, FREQUENCY TIME : 2 WEEKS
     Route: 042
     Dates: start: 20150421, end: 20150421
  12. DOCETAXEL [Suspect]
     Active Substance: DOCETAXEL
     Dosage: 120 MG, EVERY 3 WEEKS (CUMULATIVE DOSE TO FIRST REACTION: 125.71429 MG) , UNIT DOSE - 120 MILLIGRAM
     Route: 042
     Dates: start: 20150512, end: 20150804
  13. DOCETAXEL [Suspect]
     Active Substance: DOCETAXEL
     Dosage: 120 MG, EVERY 3 WEEKS (DOSE FORM: 16)  , UNIT DOSE - 120 MILLIGRAM , DURATION  - 1 DAY, FREQUENCY TI
     Route: 042
     Dates: start: 20150512, end: 20150512
  14. DOCETAXEL [Suspect]
     Active Substance: DOCETAXEL
     Dosage: 150 MG, Q2WK/EVERY 2 WEEKS (DOSE FORM: 16), UNIT DOSE - 150 MILLIGRAM , FREQUENCY  -1, FREQUENCY TIM
     Route: 042
     Dates: start: 20150421, end: 20150421
  15. DOCETAXEL [Suspect]
     Active Substance: DOCETAXEL
     Dosage: 150 MG, EVERY 3 WEEKS , UNIT DOSE - 150 MILLIGRAM , DURATION  - 1 DAY
     Route: 042
     Dates: start: 20150421, end: 20150421
  16. DOCETAXEL [Suspect]
     Active Substance: DOCETAXEL
     Dosage: 120 MG, Q3W/EVERY 3 WEEKS , UNIT DOSE - 120 MILLIGRAM , DURATION  - 85 DAYS, FREQUENCY TIME : 3 WEEK
     Route: 042
     Dates: start: 20150512, end: 20150804
  17. DOCETAXEL [Suspect]
     Active Substance: DOCETAXEL
     Dosage: 120 MG, EVERY 3 WEEKS, UNIT DOSE - 120 MILLIGRAM, FREQUENCY TIME : 3 WEEKS
     Route: 042
     Dates: start: 20150512
  18. DOCETAXEL [Suspect]
     Active Substance: DOCETAXEL
     Dosage: 150 MG, Q2WK/EVERY 2 WEEKS (DOSE FORM: 17), UNIT DOSE - 150 MILLIGRAM ,FREQUENCY -1,FREQUENCY TIME
     Route: 042
     Dates: start: 20150421, end: 20150421
  19. DOCETAXEL [Suspect]
     Active Substance: DOCETAXEL
     Dosage: 120 MG, Q3W/EVERY 3 WEEKS, UNIT DOSE - 120 MILLIGRAM , DURATION  - 85 DAYS, FREQUENCY : 1 , FREQUENC
     Route: 042
     Dates: start: 20150512, end: 20150804
  20. DOCETAXEL [Suspect]
     Active Substance: DOCETAXEL
     Dosage: 120 MG, Q3W,UNIT DOSE - 120 MILLIGRAM , DURATION  - 85 DAYS, FREQUENCY  1, FREQUENCY TIME : 3 WEEKS
     Route: 042
     Dates: start: 20150512, end: 20150804
  21. DOCETAXEL [Suspect]
     Active Substance: DOCETAXEL
     Dosage: 120 MG, TIW (EVERY 3 WEEKS), UNIT DOSE - 120 MILLIGRAM,FREQUENCY TIME : 3 WEEKS
     Route: 042
     Dates: start: 20150512
  22. DOCETAXEL [Suspect]
     Active Substance: DOCETAXEL
     Dosage: 120 MG, EVERY 3 WEEKS, UNIT DOSE - 120 MILLIGRAM,FREQUENCY TIME : 3 WEEKS
     Route: 042
     Dates: start: 20150512
  23. DOCETAXEL [Suspect]
     Active Substance: DOCETAXEL
     Dosage: 150 MG, EVERY 3 WEEKS (DOSE FORM: 16), UNIT DOSE - 150 MILLIGRAM , DURATION  - 1 DAY, FREQUENCY TIME
     Route: 042
     Dates: start: 20150421, end: 20150421
  24. DOCETAXEL [Suspect]
     Active Substance: DOCETAXEL
     Dosage: 150 MG EVERY 3 WEEKS (CUMULATIVE DOSE TO FIRST REACTION: 7.142857 MG), UNIT DOSE - 150 MILLIGRAM , D
     Route: 042
     Dates: start: 20150421, end: 20150421
  25. DOCETAXEL [Suspect]
     Active Substance: DOCETAXEL
     Dosage: 120 MG, EVERY 3 WEEKS, UNIT DOSE - 120 MILLIGRAM , DURATION  - 85 DAYS,FREQUENCY TIME : 3 WEEKS
     Route: 042
     Dates: start: 20150512, end: 20150804
  26. DOCETAXEL [Suspect]
     Active Substance: DOCETAXEL
     Dosage: 150 MG EVERY 3 WEEKS (CUMULATIVE DOSE TO FIRST REACTION: 7.142857 MG), UNIT DOSE - 150 MILLIGRAM , D
     Route: 042
     Dates: start: 20150421, end: 20150421
  27. PERTUZUMAB [Suspect]
     Active Substance: PERTUZUMAB
     Indication: Breast cancer metastatic
     Dosage: 420 MG, EVERY WEEKS (DOSE FORM:231), UNIT DOSE - 420 MILLIGRAM, FREQUENCY TIME: 1 WEEKS
     Route: 042
     Dates: start: 20150420
  28. PERTUZUMAB [Suspect]
     Active Substance: PERTUZUMAB
     Indication: Breast cancer
     Dosage: 840 MG, 3/WEEKS, UNIT DOSE - 420 MILLIGRAM ,FREQUENCY -3,FREQUENCY TIME  - 1 WEEKS, PARENT^S ROUTE O
     Route: 042
     Dates: start: 20150420
  29. PERTUZUMAB [Suspect]
     Active Substance: PERTUZUMAB
     Indication: Breast cancer
     Dosage: 420 MG, Q3WK/EVERY 3 WEEKS (DOSE FORM: 230),UNIT DOSE - 420 MILLIGRAM,FREQUENCY : 1 , FREQUENCY TIME
     Route: 042
     Dates: start: 20150420
  30. PERTUZUMAB [Suspect]
     Active Substance: PERTUZUMAB
     Indication: Breast cancer metastatic
     Dosage: 840 MG, Q3WK/EVERY 3 WEEKS (DOSE FORM: 230), UNIT DOSE - 840 MILLIGRAM,FREQUENCY : 1 , FREQUENCY TIM
     Route: 042
     Dates: start: 20150420
  31. PERTUZUMAB [Suspect]
     Active Substance: PERTUZUMAB
     Dosage: 420 MG, Q3WK/EVERY 3 WEEKS,UNIT DOSE - 420 MILLIGRAM, PARENT^S ROUTE OF ADMIN : UNKNOWN, FREQUENCY :
     Route: 042
     Dates: start: 20150420
  32. PERTUZUMAB [Suspect]
     Active Substance: PERTUZUMAB
     Dosage: 840 MG, EVERY 3 WEEKS, UNIT DOSE - 840 MILLIGRAM,FREQUENCY TIME : 3 WEEKS
     Route: 042
  33. PERTUZUMAB [Suspect]
     Active Substance: PERTUZUMAB
     Dosage: 420 MG, EVERY 3 WEEKS (DOSE FORM:230; CUMULATIVE DOSE TO FIRST REACTION: 20.0 MG), UNIT DOSE - 420 M
     Route: 042
     Dates: start: 20150420
  34. PERTUZUMAB [Suspect]
     Active Substance: PERTUZUMAB
     Dosage: 840 MG, EVERY 3 WEEKS, UNIT DOSE - 840 MILLIGRAM, FREQUENCY TIME: 3 WEEKS
     Route: 042
     Dates: start: 20150420
  35. PERTUZUMAB [Suspect]
     Active Substance: PERTUZUMAB
     Dosage: 420 MG, Q3WK/EVERY 3 WEEKS (DOSE FORM: 231), UNIT DOSE - 420 MILLIGRAM, FREQUENCY : 1 , FREQUENCY TI
     Route: 042
     Dates: start: 20150420
  36. PERTUZUMAB [Suspect]
     Active Substance: PERTUZUMAB
     Dosage: 840 MG, Q3WK/EVERY 3 WEEKS, UNIT DOSE - 840 MILLIGRAM, FREQUENCY : 1 , FREQUENCY TIME: 3 WEEKS,PAREN
     Route: 042
     Dates: start: 20150420
  37. TRASTUZUMAB [Suspect]
     Active Substance: TRASTUZUMAB
     Indication: Breast cancer metastatic
     Dosage: UNIT DOSE: 600 MG, FREQUENCY : 1 ,   FREQUENCY TIME  : 3 WEEKS,
     Route: 042
  38. TRASTUZUMAB [Suspect]
     Active Substance: TRASTUZUMAB
     Indication: Breast cancer
     Dosage: UNK
     Route: 065
  39. TRASTUZUMAB [Suspect]
     Active Substance: TRASTUZUMAB
     Dosage: (DOSE FORM: 230)
     Route: 065
  40. TRASTUZUMAB [Suspect]
     Active Substance: TRASTUZUMAB
     Dosage: 600 MG, TIW/EVERY 3 WEEKS (DOSE FORM: 230), UNIT DOSE - 600 MILLIGRAM, FREQUENCY TIME : 3 WEEKS
     Route: 041
     Dates: start: 20150420
  41. TRASTUZUMAB [Suspect]
     Active Substance: TRASTUZUMAB
     Dosage: 500 MG, Q3WK/EVERY 3 WEEKS (DOSE FORM: 230), UNIT DOSE - 500 MILLIGRAM,FREQUENCY TIME : 3 WEEKS
     Route: 042
     Dates: start: 20171227
  42. TRASTUZUMAB [Suspect]
     Active Substance: TRASTUZUMAB
     Dosage: 600 MG, EVERY 3 WEEKS, UNIT DOSE - 600 MILLIGRAM,FREQUENCY TIME : 3 WEEKS
     Route: 041
     Dates: start: 20150420
  43. TRASTUZUMAB [Suspect]
     Active Substance: TRASTUZUMAB
     Dosage: 600 MG, EVERY 3 WEEKS (DOSE FORM: 230; CUMULATIVE DOSE TO FIRST REACTION: 28.571428 MG), UNIT DOSE -
     Route: 042
     Dates: start: 20150420
  44. TRASTUZUMAB [Suspect]
     Active Substance: TRASTUZUMAB
     Dosage: 600 MG, EVERY 3 WEEKS (DOSE FORM: 230), UNIT DOSE - 600 MILLIGRAM, FREQUENCY TIME : 3 WEEKS
     Route: 042
     Dates: start: 20150420
  45. TRASTUZUMAB [Suspect]
     Active Substance: TRASTUZUMAB
     Dosage: 500 MG, EVERY 3 WEEKS (DOSE FORM: 293), UNIT DOSE - 500 MILLIGRAM,FREQUENCY TIME : 3 WEEKS
     Route: 041
     Dates: start: 20171227
  46. TRASTUZUMAB [Suspect]
     Active Substance: TRASTUZUMAB
     Dosage: 500 MG  3/WEEKS, UNIT DOSE - 500 MILLIGRAM, FREQUENCY: 3 , FREQUENCY TIME : 1 WEEKS
     Route: 041
     Dates: start: 20171227
  47. TRASTUZUMAB [Suspect]
     Active Substance: TRASTUZUMAB
     Dosage: 500 MG, Q3WK/EVERY 3 WEEKS (DOSE FORM: 293) , UNIT DOSE - 500 MILLIGRAM, FREQUENCY TIME : 3 WEEKS
     Route: 042
     Dates: start: 20171227
  48. TRASTUZUMAB [Suspect]
     Active Substance: TRASTUZUMAB
     Dosage: 840 MG, TIW (EVERY 3 WEEKS) (DOSE FORM: 293), UNIT DOSE - 840 MILLIGRAM, FREQUENCY TIME : 3 WEEKS
     Route: 042
     Dates: start: 20150420
  49. ACYCLOVIR [Concomitant]
     Active Substance: ACYCLOVIR
     Indication: Genital herpes
     Dosage: 200 MILLIGRAM DAILY; 200 MG, UNIT DOSE - 200 MILLIGRAM , DURATION  - 8 DAYS, FREQUENCY TIME : 1 DAYS
     Route: 048
     Dates: start: 20170211, end: 20170218
  50. ACYCLOVIR [Concomitant]
     Active Substance: ACYCLOVIR
     Dosage: 200 MG, UNIT DOSE - 200 MILLIGRAM , DURATION  - 8 DAYS
     Route: 048
     Dates: start: 20170211, end: 20170218
  51. ACYCLOVIR [Concomitant]
     Active Substance: ACYCLOVIR
     Dosage: 200 MG, EVERY 0.25 DAY, UNIT DOSE - 200 MILLIGRAM , DURATION  - 8 DAYS
     Route: 048
     Dates: start: 20170211, end: 20170218
  52. ACYCLOVIR [Concomitant]
     Active Substance: ACYCLOVIR
     Dosage: 800 MILLIGRAM DAILY; 800 MG,  ( CUMULATIVE DOSE TO FIRST REACTION: 530433.3 MG), UNIT DOSE - 800 MIL
     Route: 048
     Dates: start: 20170211, end: 20170218
  53. ACYCLOVIR [Concomitant]
     Active Substance: ACYCLOVIR
     Dosage: 800 MILLIGRAM DAILY; 800 MG, UNIT DOSE : 800 MILLIGRAM , DURATION  : 8 DAYS,FREQUENCY TIME : 1 DAYS
     Route: 048
     Dates: start: 20170211, end: 20170218
  54. ACYCLOVIR [Concomitant]
     Active Substance: ACYCLOVIR
     Dosage: 1600 MILLIGRAM DAILY;  DURATION  - 8 DAYS
     Route: 048
     Dates: start: 20170211, end: 20170218
  55. ACYCLOVIR [Concomitant]
     Active Substance: ACYCLOVIR
     Dosage: 800 MILLIGRAM DAILY; UNIT DOSE - 800 MILLIGRAM , DURATION  - 8 DAYS
     Route: 048
     Dates: start: 20170211, end: 20170218
  56. ACYCLOVIR [Concomitant]
     Active Substance: ACYCLOVIR
     Dosage: 800 MILLIGRAM DAILY;  DURATION  - 8 DAYS
     Route: 048
     Dates: start: 20170211, end: 20170218
  57. ACYCLOVIR [Concomitant]
     Active Substance: ACYCLOVIR
     Dosage: 200 MG, EVERY 0.25 DAY, UNIT DOSE - 200 MILLIGRAM , DURATION  - 8 DAYS
     Route: 048
     Dates: start: 20170211, end: 20170218
  58. ACYCLOVIR [Concomitant]
     Active Substance: ACYCLOVIR
     Dosage: 200 MG, UNIT DOSE - 200 MILLIGRAM , DURATION  - 8 DAYS
     Dates: start: 20170211, end: 20170218
  59. CALCIUM CARBONATE\CHOLECALCIFEROL [Concomitant]
     Active Substance: CALCIUM CARBONATE\CHOLECALCIFEROL
     Indication: Product used for unknown indication
     Dosage: 2 DOSAGE FORMS DAILY; BID, UNIT DOSE - 1 DOSAGE FORMS , DURATION  - 3 DAYS, FREQUENCY TIME : 12 HOUR
     Route: 048
     Dates: start: 20150623, end: 20150625
  60. CALCIUM CARBONATE\CHOLECALCIFEROL [Concomitant]
     Active Substance: CALCIUM CARBONATE\CHOLECALCIFEROL
     Dosage: 1 DOSAGE FORMS DAILY; UNK UNK,, DURATION  - 3 DAYS,FREQUENCY TIME : 1 DAYS
     Route: 048
     Dates: start: 20150623, end: 20150625
  61. CALCIUM CARBONATE\CHOLECALCIFEROL [Concomitant]
     Active Substance: CALCIUM CARBONATE\CHOLECALCIFEROL
     Dosage: 0.5 DAY, DURATION  - 3 DAYS
     Route: 048
     Dates: start: 20150623, end: 20150625
  62. CALCIUM CARBONATE\CHOLECALCIFEROL [Concomitant]
     Active Substance: CALCIUM CARBONATE\CHOLECALCIFEROL
     Dosage: .5 MILLIGRAM DAILY; 0.5 MG, UNIT DOSE- 0.5 MILLIGRAM, FREQUENCY TIME : 1 DAYS
     Route: 048
  63. CALCIUM CARBONATE\CHOLECALCIFEROL [Concomitant]
     Active Substance: CALCIUM CARBONATE\CHOLECALCIFEROL
     Dosage: 2 DOSAGE FORMS DAILY; UNK, BID, DURATION  - 3 DAYS
     Route: 048
     Dates: start: 20150623, end: 20150625
  64. CALCIUM CARBONATE\CHOLECALCIFEROL [Concomitant]
     Active Substance: CALCIUM CARBONATE\CHOLECALCIFEROL
     Dosage: EVERY 12 HR/BID, DURATION  - 3 DAYS, FREQUENCY TIME : 12 HOURS
     Route: 048
     Dates: start: 20150623, end: 20150625
  65. CALCIUM CARBONATE\CHOLECALCIFEROL [Concomitant]
     Active Substance: CALCIUM CARBONATE\CHOLECALCIFEROL
     Dosage: 2 DOSAGE FORMS DAILY;  UNIT DOSE - 2 DOSAGE FORMS , DURATION  - 3 DAYS
     Route: 048
     Dates: start: 20150623, end: 20150625
  66. CALCIUM CARBONATE\CHOLECALCIFEROL [Concomitant]
     Active Substance: CALCIUM CARBONATE\CHOLECALCIFEROL
     Dosage: 2 DOSAGE FORMS DAILY;  DURATION  - 3 DAYS
     Route: 048
     Dates: start: 20150623, end: 20150625
  67. CALCIUM CARBONATE\CHOLECALCIFEROL [Concomitant]
     Active Substance: CALCIUM CARBONATE\CHOLECALCIFEROL
     Dosage: 2 DOSAGE FORMS DAILY;  DURATION  - 3 DAYS, UNIT DOSE : 2 DOSAGE FORMS
     Route: 048
     Dates: start: 20150623, end: 20150625
  68. CALCIUM CARBONATE\CHOLECALCIFEROL [Concomitant]
     Active Substance: CALCIUM CARBONATE\CHOLECALCIFEROL
     Dosage: 1 DOSAGE FORMS DAILY; ,  DURATION  - 3 DAYS, UNIT DOSE : 1 DOSAGE  FORMS , FREQUENCY TIME : 12 HOURS
     Route: 048
     Dates: start: 20150623, end: 20150625
  69. ALGINIC ACID [Concomitant]
     Active Substance: ALGINIC ACID
     Dosage: ADDITIONAL INFO: GAVISCON
  70. ALTHAEA OFFICINALIS [Concomitant]
     Indication: Eczema
     Route: 061
     Dates: start: 20181112
  71. ALTHAEA OFFICINALIS [Concomitant]
     Dosage: UNK; ;ADDITIONAL INFO: AQUEOUS EXTRACT FROM ALTHAEA OFFIC. RAD
  72. AMOXICILLIN [Concomitant]
     Active Substance: AMOXICILLIN
     Indication: Influenza
     Dosage: UNK
     Route: 065
  73. AMOXICILLIN [Concomitant]
     Active Substance: AMOXICILLIN
     Indication: Lower respiratory tract infection
     Dosage: 625 MILLIGRAM DAILY; UNIT DOSE - 625 MILLIGRAM , DURATION  - 6 DAYS,
     Route: 048
     Dates: start: 20180220, end: 20180225
  74. AMOXICILLIN [Concomitant]
     Active Substance: AMOXICILLIN
     Dosage: UNK
  75. AMOXICILLIN [Concomitant]
     Active Substance: AMOXICILLIN
     Dosage: 500 MILLIGRAM DAILY; DOSAGE FORM: 245; CUMULATIVE DOSE TO FIRST REACTION: 491020.84 MG), UNIT DOSE -
     Route: 048
     Dates: start: 20171227, end: 20180102
  76. PARAFFIN\WAX, EMULSIFYING [Concomitant]
     Active Substance: PARAFFIN\WAX, EMULSIFYING
     Indication: Eczema
     Dosage: UNIT DOSE : 1 DOSAGE FORMS,  FREQUENCY TIME : AS REQUIRED
     Route: 061
     Dates: start: 20181112
  77. PARAFFIN\WAX, EMULSIFYING [Concomitant]
     Active Substance: PARAFFIN\WAX, EMULSIFYING
     Dosage: UNK
     Route: 061
     Dates: start: 20181112
  78. PARAFFIN\WAX, EMULSIFYING [Concomitant]
     Active Substance: PARAFFIN\WAX, EMULSIFYING
     Dates: start: 20181112
  79. PARAFFIN\WAX, EMULSIFYING [Concomitant]
     Active Substance: PARAFFIN\WAX, EMULSIFYING
     Dosage: UNIT DOSE : 1 DOSAGE FORMS, FREQUENCY TIME : AS REQUIRED
     Route: 061
     Dates: start: 20181112
  80. PARAFFIN\WAX, EMULSIFYING [Concomitant]
     Active Substance: PARAFFIN\WAX, EMULSIFYING
     Dosage: UNIT DOSE: 1 DOSAGE FORMS,FREQUENCY TIME : AS REQUIRED
     Route: 061
     Dates: start: 20181112
  81. PARAFFIN LIQUID [Concomitant]
     Indication: Eczema
     Dates: start: 20181112
  82. PARAFFIN LIQUID [Concomitant]
     Dosage: UNIT DOSE: 1 DOSAGE FORMS, FREQUENCY TIME : AS REQUIRED
     Route: 061
     Dates: start: 20181112
  83. PARAFFIN LIQUID [Concomitant]
     Dates: start: 20181112
  84. PARAFFIN LIQUID [Concomitant]
     Dosage: UNK
     Route: 061
     Dates: start: 20181112
  85. PARAFFIN SOFT WHITE [Concomitant]
     Indication: Eczema
     Dates: start: 20181112
  86. PARAFFIN SOFT WHITE [Concomitant]
     Dates: start: 20181112
  87. PARAFFIN SOFT WHITE [Concomitant]
     Dosage: UNIT DOSE: 1 DOSAGE FORMS,FREQUENCY TIME : AS REQUIRED
     Route: 061
     Dates: start: 20181112
  88. PARAFFIN SOFT WHITE [Concomitant]
     Dosage: UNK
     Route: 061
     Dates: start: 20181112
  89. IBUPROFEN [Concomitant]
     Active Substance: IBUPROFEN
     Indication: Arthralgia
     Dosage: UNIT DOSE - 400 MILLIGRAM
     Route: 048
     Dates: start: 20161229
  90. IBUPROFEN [Concomitant]
     Active Substance: IBUPROFEN
     Dosage: 200 MG, BID, UNIT DOSE - 200 MILLIGRAM , DURATION  - 7 DAYS,FREQUENCY TIME: 12 HOURS
     Route: 048
     Dates: start: 20150420, end: 20150426
  91. IBUPROFEN [Concomitant]
     Active Substance: IBUPROFEN
     Dosage: 400 MILLIGRAM DAILY; 400 MG, UNIT DOSE - 400 MILLIGRAM , DURATION  - 7 DAYS
     Route: 048
     Dates: start: 20150420, end: 20150426
  92. IBUPROFEN [Concomitant]
     Active Substance: IBUPROFEN
     Dosage: 400 MILLIGRAM DAILY; 400 MG, UNIT DOSE - 400 MILLIGRAM , DURATION  - 7 DAYS
     Route: 048
     Dates: start: 20150420, end: 20150426
  93. IBUPROFEN [Concomitant]
     Active Substance: IBUPROFEN
     Dosage: 200 MG, UNIT DOSE - 200 MILLIGRAM , DURATION  - 7 DAYS, FREQUENCY TIME: 12 HOUR
     Route: 048
     Dates: start: 20150420, end: 20150426
  94. CALCEOS [Concomitant]
     Active Substance: CALCIUM CARBONATE\CHOLECALCIFEROL
     Indication: Product used for unknown indication
     Dosage: 1 DOSAGE FORMS DAILY; UNK,,   DURATION  - 43 DAYS, FREQUENCY TIME : 1 DAYS, UNIT DOSE : 1 DOSAGE FOR
     Route: 048
     Dates: start: 20150713, end: 20150824
  95. CALCEOS [Concomitant]
     Active Substance: CALCIUM CARBONATE\CHOLECALCIFEROL
     Dosage: 1 DOSAGE FORMS DAILY;  UNIT DOSE - 1 DOSAGE FORMS , DURATION  - 43 DAYS
     Route: 048
     Dates: start: 20150713, end: 20150824
  96. CALCEOS [Concomitant]
     Active Substance: CALCIUM CARBONATE\CHOLECALCIFEROL
     Dosage: UNK,, DURATION  - 43 DAYS, FREQUENCY TIME : 1 DAYS
     Route: 048
     Dates: start: 20150713, end: 20150824
  97. CALCEOS [Concomitant]
     Active Substance: CALCIUM CARBONATE\CHOLECALCIFEROL
     Dosage: UNIT DOSE: 1 DOSAGE FORMS , FREQUENCY TIME : 1 DAYS
     Route: 048
     Dates: start: 20150713
  98. CALCEOS [Concomitant]
     Active Substance: CALCIUM CARBONATE\CHOLECALCIFEROL
     Dosage: 1 DOSAGE FORMS DAILY; UNK, DURATION  - 43 DAYS, FREQUENCY TIME : 1 DAYS
     Route: 048
     Dates: start: 20150713, end: 20150824
  99. CALCEOS [Concomitant]
     Active Substance: CALCIUM CARBONATE\CHOLECALCIFEROL
     Dosage: 1 DOSAGE FORMS DAILY; UNK,
     Route: 048
     Dates: start: 20150713
  100. CALCEOS [Concomitant]
     Active Substance: CALCIUM CARBONATE\CHOLECALCIFEROL
     Dosage: 1 DOSAGE FORMS DAILY;  DURATION  - 43 DAYS
     Route: 048
     Dates: start: 20150713, end: 20150824
  101. AMOXICILLIN\CLAVULANATE POTASSIUM [Concomitant]
     Active Substance: AMOXICILLIN\CLAVULANATE POTASSIUM
     Indication: Influenza
     Dosage: 1875 MILLIGRAM DAILY; 625 MG,TID, UNIT DOSE - 625 MILLIGRAM , DURATION  - 6 DAYS, FREQUENCY TIME : 8
     Route: 048
     Dates: start: 20180220, end: 20180225
  102. AMOXICILLIN\CLAVULANATE POTASSIUM [Concomitant]
     Active Substance: AMOXICILLIN\CLAVULANATE POTASSIUM
     Dosage: 625 MILLIGRAM DAILY;  CUMULATIVE DOSE TO FIRST REACTION: 648151. 06 MG), UNIT DOSE - 625 MILLIGRAM ,
     Route: 048
     Dates: start: 20180220, end: 20180225
  103. AMOXICILLIN\CLAVULANATE POTASSIUM [Concomitant]
     Active Substance: AMOXICILLIN\CLAVULANATE POTASSIUM
     Dosage: 625 MILLIGRAM DAILY;  UNIT DOSE - 625 MILLIGRAM , DURATION  - 6 DAYS, FREQUENCY TIME : 1 DAYS
     Route: 048
     Dates: start: 20180220, end: 20180225
  104. AMOXICILLIN\CLAVULANATE POTASSIUM [Concomitant]
     Active Substance: AMOXICILLIN\CLAVULANATE POTASSIUM
     Dosage: UNK, DURATION  - 6 DAYS
     Dates: start: 20180220, end: 20180225
  105. AMOXICILLIN\CLAVULANATE POTASSIUM [Concomitant]
     Active Substance: AMOXICILLIN\CLAVULANATE POTASSIUM
     Dosage: 625 MG, 0.33 DAY , UNIT DOSE - 625 MILLIGRAM
     Route: 048
     Dates: start: 20180225
  106. AMOXICILLIN\CLAVULANATE POTASSIUM [Concomitant]
     Active Substance: AMOXICILLIN\CLAVULANATE POTASSIUM
     Dosage: UNK UNK, , DURATION  - 6 DAYS,FREQUENCY TIME : 1 DAYS
     Route: 048
     Dates: start: 20180220, end: 20180225
  107. AMOXICILLIN\CLAVULANATE POTASSIUM [Concomitant]
     Active Substance: AMOXICILLIN\CLAVULANATE POTASSIUM
     Dosage: 625 MG, UNIT DOSE - 625MILLIGRAM , DURATION  - 6 DAYS,FREQUENCY TIME : 1 DAYS
     Route: 048
     Dates: start: 20180220, end: 20180225
  108. AMOXICILLIN\CLAVULANATE POTASSIUM [Concomitant]
     Active Substance: AMOXICILLIN\CLAVULANATE POTASSIUM
     Dosage: EVERY 0.3 DAY , DURATION  - 6 DAYS
     Route: 048
     Dates: start: 20180220, end: 20180225
  109. AMOXICILLIN\CLAVULANATE POTASSIUM [Concomitant]
     Active Substance: AMOXICILLIN\CLAVULANATE POTASSIUM
     Dosage: 1875 MILLIGRAM DAILY;  (UNIT DOSE - 1875 MILLIGRAM , DURATION  - 6 DAYS
     Route: 048
     Dates: start: 20180220, end: 20180225
  110. AMOXICILLIN\CLAVULANATE POTASSIUM [Concomitant]
     Active Substance: AMOXICILLIN\CLAVULANATE POTASSIUM
     Dosage: DURATION  - 6 DAYS,UNIT DOSE : 3 DOSAGE FORMS,   FREQUENCY TIME : 1 DAYS
     Route: 048
     Dates: start: 20180220, end: 20180225
  111. CODEINE [Concomitant]
     Active Substance: CODEINE
     Indication: Arthralgia
     Dosage: 30 MG , UNIT DOSE - 30MILLIGRAM , DURATION  - 127 DAYS, FREQUENCY TIME : AS REQUIRED
     Route: 048
     Dates: start: 20151221, end: 20160425
  112. CODEINE [Concomitant]
     Active Substance: CODEINE
     Dosage: 30 MG  , UNIT DOSE - 30MILLIGRAM , DURATION  - 127 DAYS
     Route: 048
     Dates: start: 20151221, end: 20160425
  113. CODEINE [Concomitant]
     Active Substance: CODEINE
     Dosage: UNK, DURATION  - 127 DAYS
     Dates: start: 20151221, end: 20160425
  114. CODEINE [Concomitant]
     Active Substance: CODEINE
     Dosage: UNK, DURATION  - 127 DAYS, FREQUENCY TIME : AS REQUIRED
     Route: 065
     Dates: start: 20151221, end: 20160425
  115. CODEINE [Concomitant]
     Active Substance: CODEINE
     Dosage: UNK
  116. CODEINE PHOSPHATE [Concomitant]
     Active Substance: CODEINE PHOSPHATE
     Indication: Arthralgia
     Dosage: 30 MG, UNIT DOSE - 30MILLIGRAM
     Route: 048
     Dates: start: 20160816
  117. CODEINE PHOSPHATE [Concomitant]
     Active Substance: CODEINE PHOSPHATE
     Dosage: 30 MG,, UNIT DOSE -30 MILLIGRAM, FREQUENCY TIME : AS REQUIRED
     Route: 048
     Dates: start: 20160816
  118. CODEINE PHOSPHATE [Concomitant]
     Active Substance: CODEINE PHOSPHATE
     Dosage: 30 MG, UNIT DOSE -30 MILLIGRAM
     Route: 048
     Dates: start: 20160816
  119. DENOSUMAB [Concomitant]
     Active Substance: DENOSUMAB
     Indication: Product used for unknown indication
     Dosage: 120 MG , UNIT DOSE - 120MILLIGRAM , DURATION  - 686  DAYS, FREQUENCY TIME : 12 HOURS
     Route: 048
     Dates: start: 20180115
  120. DENOSUMAB [Concomitant]
     Active Substance: DENOSUMAB
     Dosage: 120 MG ,  120MILLIGRAM, FREQUENCY TIME : 12 HOURS
     Route: 048
  121. DENOSUMAB [Concomitant]
     Active Substance: DENOSUMAB
     Dosage: CUMULATIVE DOSE TO FIRST REACTION: 256.0 MG), UNIT DOSE: 120MILLIGRAM , DURATION  - 686  DAYS, FREQU
     Route: 058
     Dates: start: 20150623, end: 20170508
  122. DENOSUMAB [Concomitant]
     Active Substance: DENOSUMAB
     Dosage: 120 MG, QMO EVERY 1 MONTH, UNIT DOSE:  120MILLIGRAM, FREQUENCY : 1 , FREQUENCY TIME : 1 MONTHS
     Route: 058
     Dates: start: 20150623
  123. DENOSUMAB [Concomitant]
     Active Substance: DENOSUMAB
     Dosage: 120 MG EVERY 1 MONTH (CUMULATIVE DOSE TO FIRST REACTION: 256.0 MG), UNIT DOSE: 120MILLIGRAM , DURATI
     Route: 058
     Dates: start: 20150623, end: 20170508
  124. DENOSUMAB [Concomitant]
     Active Substance: DENOSUMAB
     Dosage: 240 MG; CUMULATIVE DOSE TO FIRST REACTION: 240250.0 MG),  240 MILLIGRAM , DURATION  - 686  DAYS, FRE
     Route: 048
     Dates: start: 20180115
  125. DENOSUMAB [Concomitant]
     Active Substance: DENOSUMAB
     Dosage: 120 MG, UNIT DOSE -120MILLIGRAM,FREQUENCY TIME : 1 DAYS
     Route: 048
     Dates: start: 20180115
  126. DENOSUMAB [Concomitant]
     Active Substance: DENOSUMAB
     Dosage: 120 MG, MONTHLY, UNIT DOSE - 120MILLIGRAM , DURATION  - 686 DAYS, FREQUENCY : 1 , FREQUENCY TIME : 1
     Route: 058
     Dates: start: 20150623, end: 20170508
  127. DENOSUMAB [Concomitant]
     Active Substance: DENOSUMAB
     Dosage: 120 MG EVERY 1 MONTH , UNIT DOSE - 120MILLIGRAM, FREQUENCY : 1 , FREQUENCY TIME : 1 MONTHS
     Route: 058
     Dates: start: 20150623
  128. DENOSUMAB [Concomitant]
     Active Substance: DENOSUMAB
     Dosage: 240 MILLIGRAM DAILY;  UNIT DOSE - 240MILLIGRAM , DURATION  - 686 DAYS
     Route: 048
     Dates: start: 20180115
  129. DENOSUMAB [Concomitant]
     Active Substance: DENOSUMAB
     Dosage: 240 MILLIGRAM DAILY;  UNIT DOSE - 240 MILLIGRAM , DURATION  - 686 DAYS
     Route: 048
     Dates: start: 20180115
  130. DENOSUMAB [Concomitant]
     Active Substance: DENOSUMAB
     Dosage: 120 MG, MONTHLY , UNIT DOSE - 120 MILLIGRAM , DURATION  - 686 DAYS, FREQUENCY : 1 , FREQUENCY TIME :
     Route: 058
     Dates: start: 20150623, end: 20170508
  131. DENOSUMAB [Concomitant]
     Active Substance: DENOSUMAB
     Dosage: 480 MILLIGRAM DAILY;  DURATION  - 686 DAYS
     Route: 048
     Dates: start: 20180115
  132. DENOSUMAB [Concomitant]
     Active Substance: DENOSUMAB
     Dosage: 240 MILLIGRAM DAILY;  CUMULATIVE DOSE TO FIRST REACTION: 240250.0 MG), UNIT DOSE - 240 MILLIGRAM , D
     Route: 048
     Dates: start: 20180115
  133. DENOSUMAB [Concomitant]
     Active Substance: DENOSUMAB
     Dosage: 120 MG, QMO EVERY 1 MONTH , UNIT DOSE - 120MILLIGRAM , DURATION  - 686 DAYS, FREQUENCY : 1 , FREQUEN
     Route: 058
     Dates: start: 20150623, end: 20170508
  134. DOMPERIDONE [Concomitant]
     Active Substance: DOMPERIDONE
     Indication: Nausea
     Dosage: 10 MILLIGRAM , UNIT DOSE - 10 MILLIGRAM , DURATION  - 8 DAYS
     Route: 048
     Dates: start: 20150420, end: 20150427
  135. DOMPERIDONE [Concomitant]
     Active Substance: DOMPERIDONE
     Dosage: 10 MILLIGRAM, UNIT DOSE - 10 MILLIGRAM , DURATION  - 8 DAYS
     Dates: start: 20150420, end: 20150427
  136. DOMPERIDONE [Concomitant]
     Active Substance: DOMPERIDONE
     Dosage: 10 MG EVERY 0.3 DAY, UNIT DOSE - 10 MILLIGRAM , DURATION  - 8 DAYS, FREQUENCY : 1
     Route: 048
     Dates: start: 20150420, end: 20150427
  137. DOMPERIDONE [Concomitant]
     Active Substance: DOMPERIDONE
     Dosage: 10 MG, Q3D/EVERY 3 DAY, UNIT DOSE - 10 MILLIGRAM , DURATION  - 8 DAYS, FREQUENCY : 1 ,FREQUENCY TIME
     Route: 048
     Dates: start: 20150420, end: 20150427
  138. DOMPERIDONE [Concomitant]
     Active Substance: DOMPERIDONE
     Dosage: 30 MILLIGRAM DAILY; 10 MG, TID , UNIT DOSE - 30 MILLIGRAM , DURATION  - 8 DAYS
     Route: 048
     Dates: start: 20150420, end: 20150427
  139. LANOLIN\LIGHT MINERAL OIL\PARAFFIN [Concomitant]
     Active Substance: LANOLIN\LIGHT MINERAL OIL\PARAFFIN
     Indication: Pruritus
     Dosage: UNK, (1 TABLESPOON), FREQUENCY TIME : AS REQUIRED
     Route: 061
     Dates: start: 20150515
  140. LANOLIN\LIGHT MINERAL OIL\PARAFFIN [Concomitant]
     Active Substance: LANOLIN\LIGHT MINERAL OIL\PARAFFIN
     Dosage: 1 TABLESPOON
     Route: 061
     Dates: start: 20150515
  141. LANOLIN\LIGHT MINERAL OIL\PARAFFIN [Concomitant]
     Active Substance: LANOLIN\LIGHT MINERAL OIL\PARAFFIN
     Dosage: UNK , FREQUENCY TIME : AS REQUIRED
     Route: 061
     Dates: start: 20150515
  142. LANOLIN\LIGHT MINERAL OIL\PARAFFIN [Concomitant]
     Active Substance: LANOLIN\LIGHT MINERAL OIL\PARAFFIN
     Dosage: UNK UNK, FREQUENCY TIME : AS REQUIRED
     Route: 061
     Dates: start: 20150515
  143. LANOLIN\LIGHT MINERAL OIL\PARAFFIN [Concomitant]
     Active Substance: LANOLIN\LIGHT MINERAL OIL\PARAFFIN
     Dosage: DOSE: 1, 1 TABLESPOON, FREQUENCY TIME : AS REQUIRED,UNIT DOSE : 1 DOSAGE FORMS
     Route: 061
     Dates: start: 20150515
  144. ENOXAPARIN [Concomitant]
     Active Substance: ENOXAPARIN
     Indication: Influenza
     Dosage: 40 MILLIGRAM DAILY; 40 MG, UNIT DOSE - 40 MILLIGRAM , DURATION  - 2 DAYS, FREQUENCY TIME : 1 DAYS
     Route: 058
     Dates: start: 20180219, end: 20180220
  145. ENOXAPARIN [Concomitant]
     Active Substance: ENOXAPARIN
     Dosage: 40 MILLIGRAM DAILY; 40 MG, , UNIT DOSE - 40 MILLIGRAM, FREQUENCY TIME : 1 DAYS
     Route: 058
     Dates: start: 20180220
  146. ENOXAPARIN [Concomitant]
     Active Substance: ENOXAPARIN
     Dosage: 40 MG, UNIT DOSE - 40 MILLIGRAM , DURATION  - 2 DAYS
     Route: 058
     Dates: start: 20180219, end: 20180220
  147. ENOXAPARIN SODIUM [Concomitant]
     Active Substance: ENOXAPARIN SODIUM
     Indication: Product used for unknown indication
     Dosage: 40 MILLIGRAM DAILY;  , UNIT DOSE - 40 MILLIGRAM , DURATION  - 2 DAYS, FREQUENCY TIME : 1 DAYS
     Route: 058
     Dates: start: 20180219, end: 20180220
  148. HYDROCORTISONE [Concomitant]
     Active Substance: HYDROCORTISONE
     Indication: Eczema
     Dosage: (1 DRP) , STRENGTH;  1%
     Route: 065
  149. HYDROCORTISONE [Concomitant]
     Active Substance: HYDROCORTISONE
     Dosage: 1 DRP
     Route: 061
  150. HYDROCORTISONE [Concomitant]
     Active Substance: HYDROCORTISONE
     Dosage: 1 DRP
     Route: 065
  151. HYDROCORTISONE [Concomitant]
     Active Substance: HYDROCORTISONE
     Dosage: UNK, FREQUENCY TIME : AS REQUIRED
     Route: 061
  152. HYDROCORTISONE [Concomitant]
     Active Substance: HYDROCORTISONE
     Dosage: 400 MG (DOSE FORM: 245), UNIT DOSE - 400 MILLIGRAM
     Route: 048
     Dates: start: 20161229
  153. IBUPROFEN [Concomitant]
     Active Substance: IBUPROFEN
     Indication: Spinal pain
     Dosage: UNK
     Route: 048
     Dates: start: 20161229
  154. IBUPROFEN [Concomitant]
     Active Substance: IBUPROFEN
     Dosage: UNIT DOSE : 1 DOSAGE FORMS ,FREQUENCY TIME : AS REQUIRED
     Route: 048
     Dates: start: 20161229
  155. IBUPROFEN [Concomitant]
     Active Substance: IBUPROFEN
     Dosage: 400 MG , UNIT DOSE - 400 MILLIGRAM
     Route: 048
     Dates: start: 20161229
  156. IBUPROFEN [Concomitant]
     Active Substance: IBUPROFEN
     Dosage: 400 MG , UNIT DOSE - 400MILLIGRAM, FREQUENCY TIME : AS REQUIRED
     Route: 048
     Dates: start: 20161229
  157. IBUPROFEN [Concomitant]
     Active Substance: IBUPROFEN
     Dosage: 400 MG, UNIT DOSE - 400 MILLIGRAM
     Route: 048
     Dates: start: 20161229
  158. POLYETHYLENE GLYCOL 3350\POTASSIUM CHLORIDE\SODIUM BICARBONATE\SODIUM [Concomitant]
     Active Substance: POLYETHYLENE GLYCOL 3350\POTASSIUM CHLORIDE\SODIUM BICARBONATE\SODIUM CHLORIDE
     Indication: Influenza
     Dosage: UNK DURATION  - 2 DAYS
     Route: 065
     Dates: start: 20180219, end: 20180220
  159. POLYETHYLENE GLYCOL 3350\POTASSIUM CHLORIDE\SODIUM BICARBONATE\SODIUM [Concomitant]
     Active Substance: POLYETHYLENE GLYCOL 3350\POTASSIUM CHLORIDE\SODIUM BICARBONATE\SODIUM CHLORIDE
     Dosage: 2 DOSAGE FORMS DAILY;  (1 SACHET), DURATION  - 2 DAYS
     Route: 048
     Dates: start: 20180219, end: 20180220
  160. POLYETHYLENE GLYCOL 3350\POTASSIUM CHLORIDE\SODIUM BICARBONATE\SODIUM [Concomitant]
     Active Substance: POLYETHYLENE GLYCOL 3350\POTASSIUM CHLORIDE\SODIUM BICARBONATE\SODIUM CHLORIDE
     Dosage: DOSE: 2, 1 SACHET, DAILY, DURATION  - 2 DAYS, FREQUENCY TIME : 1 DAYS
     Route: 048
     Dates: start: 20180219, end: 20180220
  161. POLYETHYLENE GLYCOL 3350\POTASSIUM CHLORIDE\SODIUM BICARBONATE\SODIUM [Concomitant]
     Active Substance: POLYETHYLENE GLYCOL 3350\POTASSIUM CHLORIDE\SODIUM BICARBONATE\SODIUM CHLORIDE
     Dosage: 1 SACHET, DURATION  - 2 DAYS, UNIT DOSE : 2 DOSAGE FORMS, FREQUENCY TIME : 1 DAYS
     Route: 048
     Dates: start: 20180219, end: 20180220
  162. POLYETHYLENE GLYCOL 3350\POTASSIUM CHLORIDE\SODIUM BICARBONATE\SODIUM [Concomitant]
     Active Substance: POLYETHYLENE GLYCOL 3350\POTASSIUM CHLORIDE\SODIUM BICARBONATE\SODIUM CHLORIDE
     Dosage: 1 OTHER, DURATION  - 2 DAYS, UNIT DOSE : 2 DOSAGE FORMS, FREQUENCY TIME : 1 DAYS
     Route: 048
     Dates: start: 20180219, end: 20180220
  163. POLYETHYLENE GLYCOL 3350\POTASSIUM CHLORIDE\SODIUM BICARBONATE\SODIUM [Concomitant]
     Active Substance: POLYETHYLENE GLYCOL 3350\POTASSIUM CHLORIDE\SODIUM BICARBONATE\SODIUM CHLORIDE
     Dosage: 2 DOSAGE FORMS DAILY; (1 SACHET), DURATION  - 2 DAYS
     Route: 048
     Dates: start: 20180219, end: 20180220
  164. POLYETHYLENE GLYCOL 3350\POTASSIUM CHLORIDE\SODIUM BICARBONATE\SODIUM [Concomitant]
     Active Substance: POLYETHYLENE GLYCOL 3350\POTASSIUM CHLORIDE\SODIUM BICARBONATE\SODIUM CHLORIDE
     Dosage: UNK, DURATION  - 2 DAYS
     Route: 065
     Dates: start: 20180219, end: 20180220
  165. POLYETHYLENE GLYCOL 3350\POTASSIUM CHLORIDE\SODIUM BICARBONATE\SODIUM [Concomitant]
     Active Substance: POLYETHYLENE GLYCOL 3350\POTASSIUM CHLORIDE\SODIUM BICARBONATE\SODIUM CHLORIDE
     Dosage: SACHET , DURATION  - 2 DAYS, UNIT DOSE : 1 DOSAGE FORMS , FREQUENCY TIME : 12 HOURS
     Route: 048
     Dates: start: 20180219, end: 20180220
  166. POLYETHYLENE GLYCOL 3350\POTASSIUM CHLORIDE\SODIUM BICARBONATE\SODIUM [Concomitant]
     Active Substance: POLYETHYLENE GLYCOL 3350\POTASSIUM CHLORIDE\SODIUM BICARBONATE\SODIUM CHLORIDE
     Dosage: (SOLUTION), DURATION  - 2 DAYS, FREQUENCY TIME : 12 HOURS
     Route: 048
     Dates: start: 20180219, end: 20180220
  167. POLYETHYLENE GLYCOL 3350\POTASSIUM CHLORIDE\SODIUM BICARBONATE\SODIUM [Concomitant]
     Active Substance: POLYETHYLENE GLYCOL 3350\POTASSIUM CHLORIDE\SODIUM BICARBONATE\SODIUM CHLORIDE
     Dosage: 0.5, , DURATION  - 2 DAYS
     Route: 048
     Dates: start: 20180219, end: 20180220
  168. LOPERAMIDE [Concomitant]
     Active Substance: LOPERAMIDE
     Indication: Diarrhoea
     Dosage: EVERY 1 DAY AS NEEDED, UNIT DOSE - 2 MILLIGRAM , DURATION  - 1 DAYS
     Route: 048
     Dates: start: 20150516, end: 20150516
  169. LOPERAMIDE [Concomitant]
     Active Substance: LOPERAMIDE
     Dosage: UNIT DOSE - 2 MILLIGRAM , DURATION  - 1 DAYS, FREQUENCY TIME : AS REQUIRED
     Route: 048
     Dates: start: 20150516, end: 20150516
  170. LOPERAMIDE [Concomitant]
     Active Substance: LOPERAMIDE
     Dosage: UNIT DOSE - 2 MILLIGRAM , DURATION  - 1 DAYS
     Route: 048
     Dates: start: 20150516, end: 20150516
  171. LOPERAMIDE [Concomitant]
     Active Substance: LOPERAMIDE
     Dosage: 2 MG, UNIT DOSE - 2 MILLIGRAM , DURATION  - 1 DAYS
     Route: 048
     Dates: start: 20150516, end: 20150516
  172. MEGACE [Concomitant]
     Active Substance: MEGESTROL ACETATE
     Indication: Menopausal symptoms
     Dosage: UNIT DOSE -80MILLIGRAM
     Route: 048
     Dates: start: 20150601
  173. MEGACE [Concomitant]
     Active Substance: MEGESTROL ACETATE
     Dosage: UNIT DOSE -80MILLIGRAM
  174. MEGACE [Concomitant]
     Active Substance: MEGESTROL ACETATE
     Dosage: UNIT DOSE -80MILLIGRAM, FREQUENCY TIME : 1 DAYS
     Route: 048
     Dates: start: 20150601
  175. MEGACE [Concomitant]
     Active Substance: MEGESTROL ACETATE
     Dosage: EVERY OTHER DAY, UNIT DOSE -80MILLIGRAM
     Route: 048
     Dates: start: 20150601
  176. MEGACE [Concomitant]
     Active Substance: MEGESTROL ACETATE
     Dosage: EVERY OTHER DAY, UNIT DOSE -80MILLIGRAM
     Route: 048
  177. MEGACE [Concomitant]
     Active Substance: MEGESTROL ACETATE
     Dosage: UNIT DOSE -80MILLIGRAM, FREQUENCY TIME : 2  DAYS
     Route: 048
     Dates: start: 20150601
  178. MEGACE [Concomitant]
     Active Substance: MEGESTROL ACETATE
     Dosage: UNIT DOSE -80MILLIGRAM
     Route: 048
     Dates: start: 20150601
  179. MEGACE [Concomitant]
     Active Substance: MEGESTROL ACETATE
     Dosage: 160 MILLIGRAM DAILY;  UNIT DOSE -160 MILLIGRAM
     Route: 048
     Dates: start: 20150601
  180. MEGACE [Concomitant]
     Active Substance: MEGESTROL ACETATE
     Dosage: 80 MG,QOD, UNIT DOSE - 80 MILLIGRAM, FREQUENCY TIME : 2  DAYS
     Route: 048
     Dates: start: 20150601
  181. MEGESTROL ACETATE [Concomitant]
     Active Substance: MEGESTROL ACETATE
     Indication: Menopausal symptoms
     Dosage: 80 MILLIGRAM DAILY; UNIT DOSE - 80 MILLIGRAM,  FREQUENCY TIME : 1 DAYS
     Route: 048
     Dates: start: 20150601
  182. METHYL SALICYLATE [Concomitant]
     Active Substance: METHYL SALICYLATE
     Indication: Product used for unknown indication
     Dosage: FREQUENCY TIME : AS REQUIRED
     Route: 048
     Dates: start: 20161229
  183. METHYL SALICYLATE [Concomitant]
     Active Substance: METHYL SALICYLATE
     Dosage: UNK UNK, FREQUENCY TIME : AS REQUIRED
     Dates: start: 20161229
  184. NAPROXEN [Concomitant]
     Active Substance: NAPROXEN
     Indication: Influenza
     Dosage: DURATION 1 YEARS
     Route: 048
     Dates: start: 2015, end: 20160314
  185. NAPROXEN [Concomitant]
     Active Substance: NAPROXEN
     Indication: Arthralgia
     Dosage: UNK, DURATION  - 1 DAYS
     Route: 048
     Dates: start: 2015, end: 20160314
  186. NAPROXEN [Concomitant]
     Active Substance: NAPROXEN
     Dosage: 1000 MILLIGRAM DAILY; 500 MG, BID, UNIT DOSE - 1000 MILLIGRAM , DURATION  - 3 DAYS
     Route: 048
     Dates: start: 20180218, end: 20180220
  187. NAPROXEN [Concomitant]
     Active Substance: NAPROXEN
     Dosage: 250 MG, UNIT DOSE 250  MILLIGRAM , DURATION  -1 YEARS
     Route: 048
     Dates: start: 2015, end: 20160314
  188. NAPROXEN [Concomitant]
     Active Substance: NAPROXEN
     Dosage: 500 MG, UNIT DOSE - 500 MILLIGRAM , DURATION  - 3 DAYS
     Route: 048
     Dates: start: 20180218, end: 20180220
  189. NAPROXEN [Concomitant]
     Active Substance: NAPROXEN
     Dosage: 1000 MILLIGRAM DAILY; Q12HR, UNIT DOSE - 500 MILLIGRAM , DURATION  - 3 DAYS
     Route: 048
     Dates: start: 20180218, end: 20180220
  190. NAPROXEN [Concomitant]
     Active Substance: NAPROXEN
     Dosage: 500 MG, UNIT DOSE - 500 MILLIGRAM , DURATION  - 3 DAYS,FREQUENCY TIME : 12 HOURS
     Route: 048
     Dates: start: 20180218, end: 20180220
  191. NAPROXEN [Concomitant]
     Active Substance: NAPROXEN
     Dosage: 500 MG, UNIT DOSE - 500 MILLIGRAM , DURATION  - 1 DAYS
     Route: 048
     Dates: start: 2015, end: 20160314
  192. NAPROXEN [Concomitant]
     Active Substance: NAPROXEN
     Dosage: 1000 MG, UNIT DOSE - 1000 MILLIGRAM , DURATION  - 3 DAYS, FREQUENCY TIME : 1 DAYS
     Route: 048
     Dates: start: 20180218, end: 20180220
  193. SODIUM CHLORIDE [Concomitant]
     Active Substance: SODIUM CHLORIDE
     Indication: Abdominal pain
     Dosage: 1000 ML, UNIT DOSE 1000 ML  DURATION  1 DAYS, FREQUENCY TIME : AS REQUIRED,FORM STRENGTH : 0.9%
     Route: 042
     Dates: start: 20160125, end: 20160125
  194. SODIUM CHLORIDE [Concomitant]
     Active Substance: SODIUM CHLORIDE
     Dosage: UNIT DOSE 1000 ML  DURATION  1 DAYS, FREQUENCY TIME : AS REQUIRED, STRENGTH : 0.9%
     Route: 042
     Dates: start: 20160125, end: 20160125
  195. SODIUM CHLORIDE [Concomitant]
     Active Substance: SODIUM CHLORIDE
     Dosage: 1000 ML,UNIT DOSE 1000 ML  DURATION  1 DAYS, FREQUENCY TIME : AS REQUIRED
     Route: 042
     Dates: start: 20160125, end: 20160125
  196. OMEPRAZOLE [Concomitant]
     Active Substance: OMEPRAZOLE
     Indication: Gastrooesophageal reflux disease
     Dosage: 220 MILLIGRAM DAILY; 220 MG UNIT DOSE 220 MILLIGRAM DURATION  22 DAYS, FREQUENCY TIME : 1 DAYS
     Route: 048
     Dates: start: 20150622, end: 20150713
  197. OMEPRAZOLE [Concomitant]
     Active Substance: OMEPRAZOLE
     Indication: Gastritis
     Dosage: 20 MG UNIT DOSE 20 MILLIGRAM
     Route: 048
  198. OMEPRAZOLE [Concomitant]
     Active Substance: OMEPRAZOLE
     Dosage: 20 MILLIGRAM DAILY;  UNIT DOSE 20 MILLIGRAM
     Route: 048
     Dates: start: 20150622
  199. OMEPRAZOLE [Concomitant]
     Active Substance: OMEPRAZOLE
     Dosage: 20 MILLIGRAM DAILY;  UNIT DOSE 20 MILLIGRAM
     Route: 048
     Dates: start: 20150713
  200. OMEPRAZOLE [Concomitant]
     Active Substance: OMEPRAZOLE
     Dosage: 220 MG UNIT DOSE 220 MILLIGRAM DURATION 22 DAYS, FREQUENCY TIME : 1 DAYS
     Route: 048
     Dates: start: 20150622, end: 20150713
  201. OMEPRAZOLE [Concomitant]
     Active Substance: OMEPRAZOLE
     Dosage: 20 MILLIGRAM DAILY; 20 MG UNIT DOSE 20 MILLIGRAM DURATION 22 DAYS
     Route: 048
     Dates: start: 20150622, end: 20150713
  202. OMEPRAZOLE [Concomitant]
     Active Substance: OMEPRAZOLE
     Dosage: 20 MILLIGRAM DAILY; 20 MG,  UNIT DOSE 20 MILLIGRAM DURATION 22 DAYS
     Route: 048
     Dates: start: 20150622, end: 20150713
  203. ACETAMINOPHEN [Concomitant]
     Active Substance: ACETAMINOPHEN
     Indication: Arthralgia
     Dosage: 1 G, UNIT DOSE 1 GRAM  DURATION 3 YEARS
     Route: 048
     Dates: start: 20150420, end: 20180217
  204. ACETAMINOPHEN [Concomitant]
     Active Substance: ACETAMINOPHEN
     Indication: Influenza
     Dosage: 4 GRAM DAILY;  UNIT DOSE 4 GRAM  DURATION 9 DAYS
     Route: 048
     Dates: start: 20150427, end: 20150505
  205. ACETAMINOPHEN [Concomitant]
     Active Substance: ACETAMINOPHEN
     Dosage: 4 GRAM DAILY; UNIT DOSE 4 GRAM
     Route: 048
     Dates: start: 20150427
  206. ACETAMINOPHEN [Concomitant]
     Active Substance: ACETAMINOPHEN
     Dosage: 4 GRAM DAILY; 4 G,  UNIT DOSE 4 GRAM  DURATION 3 DAYS, FREQUENCY TIME : 1 DAYS
     Route: 048
     Dates: start: 20180218, end: 20180220
  207. ACETAMINOPHEN [Concomitant]
     Active Substance: ACETAMINOPHEN
     Dosage: 4 GRAM DAILY; 4 G,  UNIT DOSE 4 GRAM  DURATION 3 DAYS
     Route: 048
     Dates: start: 20180218, end: 20180220
  208. ACETAMINOPHEN [Concomitant]
     Active Substance: ACETAMINOPHEN
     Dosage: 4 GRAM DAILY;  UNIT DOSE 1 GRAM  DURATION 3 DAYS
     Route: 048
     Dates: start: 20180218, end: 20180220
  209. ACETAMINOPHEN [Concomitant]
     Active Substance: ACETAMINOPHEN
     Dosage: 4 FEMTOGRAM DAILY;  UNIT DOSE 4 GRAM  DURATION 9 DAYS
     Route: 048
     Dates: start: 20150427, end: 20150505
  210. ACETAMINOPHEN [Concomitant]
     Active Substance: ACETAMINOPHEN
     Dosage: 1 GRAM, EVERY 0.25/4 DAY, UNIT DOSE 1 GRAM
     Route: 048
     Dates: start: 20180220
  211. ACETAMINOPHEN [Concomitant]
     Active Substance: ACETAMINOPHEN
     Dosage: 1 GRAM,UNIT DOSE 1 GRAM, FREQUENCY TIME : 6  HOURS
     Route: 048
     Dates: start: 20150427
  212. ACETAMINOPHEN [Concomitant]
     Active Substance: ACETAMINOPHEN
     Dosage: 1 GRAM,  UNIT DOSE 1 GRAM  DURATION 9 DAYS, FREQUENCY TIME : 6 HOURS
     Route: 048
     Dates: start: 20150427, end: 20150505
  213. ACETAMINOPHEN [Concomitant]
     Active Substance: ACETAMINOPHEN
     Dosage: 4 GRAM DAILY;  UNIT DOSE 1 GRAM  DURATION 3 DAYS
     Route: 048
     Dates: start: 20180218, end: 20180220
  214. RANITIDINE [Concomitant]
     Active Substance: RANITIDINE
     Indication: Gastrooesophageal reflux disease
     Dosage: 300 MILLIGRAM DAILY;  UNIT DOSE 300 MILLIGRAM, FREQUENCY TIME : 1 DAYS
     Route: 048
     Dates: start: 20150421
  215. RANITIDINE [Concomitant]
     Active Substance: RANITIDINE
     Dosage: 300 MILLIGRAM DAILY; UNIT DOSE 300 MILLIGRAM, FREQUENCY TIME : 1 DAYS
     Route: 048
     Dates: start: 20150421
  216. RANITIDINE [Concomitant]
     Active Substance: RANITIDINE
     Dosage: 150 MG,  UNIT DOSE 150 MILLIGRAM, FREQUENCY TIME : 12 HOURS
     Route: 048
     Dates: start: 20150421
  217. RANITIDINE [Concomitant]
     Active Substance: RANITIDINE
     Dosage: 150 MG UNIT DOSE 150 MILLIGRAM
     Route: 048
     Dates: start: 20150421
  218. RANITIDINE [Concomitant]
     Active Substance: RANITIDINE
     Dosage: 150 MILLIGRAM DAILY;  UNIT DOSE 150 MILLIGRAM, FREQUENCY TIME : 1 DAYS
     Route: 048
     Dates: start: 20150421
  219. SENNA [Concomitant]
     Active Substance: SENNA LEAF\SENNOSIDES\SENNOSIDES A AND B
     Indication: Influenza
     Dosage: 1 DOSAGE FORMS DAILY;  (1 SACHET) UNIT DOSE 1 DOSAGE FORM  DURATION 2 DAYS
     Route: 048
     Dates: start: 20180219, end: 20180220
  220. SENNA [Concomitant]
     Active Substance: SENNA LEAF\SENNOSIDES\SENNOSIDES A AND B
     Dosage: UNK UNK,; DURATION 12 DAYS, FREQUENCY TIME : 1 DAYS
     Route: 048
     Dates: start: 20180209, end: 20180220
  221. SENNA [Concomitant]
     Active Substance: SENNA LEAF\SENNOSIDES\SENNOSIDES A AND B
     Dosage: SOLUTION DURATION 2 DAYS,FREQUENCY TIME : 1 DAYS
     Route: 048
     Dates: start: 20180219, end: 20180220
  222. SENNA [Concomitant]
     Active Substance: SENNA LEAF\SENNOSIDES\SENNOSIDES A AND B
     Dosage: 1 DOSAGE FORMS DAILY; 1 OTHER,  DURATION 2 DAYS, UNIT DOSE :  1 DOSAGE FORMS ,FREQUENCY TIME : 1 DAY
     Route: 048
     Dates: start: 20180219, end: 20180220
  223. SENNA [Concomitant]
     Active Substance: SENNA LEAF\SENNOSIDES\SENNOSIDES A AND B
     Dosage: 1 DOSAGE FORMS DAILY; SACHET DURATION 2 DAYS, UNIT DOSE : 1 DOSAGE FORMS
     Route: 048
     Dates: start: 20180219, end: 20180220
  224. TAMIFLU [Concomitant]
     Active Substance: OSELTAMIVIR PHOSPHATE
     Indication: Influenza
     Dosage: 75 MILLIGRAM DAILY;  UNIT DOSE 75 MILLIGRAM DURATION 8 DAYS, FREQUENCY TIME : 1 DAYS
     Route: 048
     Dates: start: 20180219, end: 20180226
  225. TAMIFLU [Concomitant]
     Active Substance: OSELTAMIVIR PHOSPHATE
     Dosage: UNIT DOSE 150 MILLIGRAM DURATION 7 DAYS, FREQUENCY TIME : 1 DAYS
     Route: 048
     Dates: start: 20180219, end: 20180226
  226. TAMIFLU [Concomitant]
     Active Substance: OSELTAMIVIR PHOSPHATE
     Dosage: UNIT DOSE 150 MILLIGRAM, FREQUENCY TIME : 1 DAYS
     Route: 048
     Dates: start: 20180226
  227. TAMIFLU [Concomitant]
     Active Substance: OSELTAMIVIR PHOSPHATE
     Dosage: CUMULATIVE DOSE TO FIRST REACTION: 77703.125 MG) UNIT DOSE 75 MILLIGRAM , DURATION 8 DAYS, FREQUENCY
     Route: 048
     Dates: start: 20180219, end: 20180226
  228. TAMIFLU [Concomitant]
     Active Substance: OSELTAMIVIR PHOSPHATE
     Dosage: UNIT DOSE 75 MILLIGRAM DURATION 8 DAYS
     Route: 048
     Dates: start: 20180219, end: 20180226
  229. TAMIFLU [Concomitant]
     Active Substance: OSELTAMIVIR PHOSPHATE
     Dosage: 75 MG, UNIT DOSE 75 MILLIGRAM, FREQUENCY TIME : 12 HOURS
     Route: 048
     Dates: start: 20180226
  230. TAMIFLU [Concomitant]
     Active Substance: OSELTAMIVIR PHOSPHATE
     Dosage: UNIT DOSE 75 MILLIGRAM , DURATION 8 DAYS, FREQUENCY TIME : 1 DAYS
     Route: 048
     Dates: start: 20180219, end: 20180226
  231. TAMIFLU [Concomitant]
     Active Substance: OSELTAMIVIR PHOSPHATE
     Dosage: 75 MG, UNIT DOSE 75 MILLIGRAM , DURATION 8 DAYS, FREQUENCY TIME : 12 HOURS
     Route: 048
     Dates: start: 20180219, end: 20180226
  232. PIPERACILLIN SODIUM\TAZOBACTAM SODIUM [Concomitant]
     Active Substance: PIPERACILLIN SODIUM\TAZOBACTAM SODIUM
     Indication: Influenza
     Dosage: 13.5 GRAM DAILY; 4.5 GRAM, TID UNIT DOSE 13.5 GRAM
     Route: 042
     Dates: start: 20150429
  233. PIPERACILLIN SODIUM\TAZOBACTAM SODIUM [Concomitant]
     Active Substance: PIPERACILLIN SODIUM\TAZOBACTAM SODIUM
     Indication: Neutropenic sepsis
     Dosage: 4.5 G/Q8HR/TID UNIT DOSE 4.5 GRAM, FREQUENCY TIME : 3  DAYS
     Route: 042
     Dates: start: 20150429
  234. PIPERACILLIN SODIUM\TAZOBACTAM SODIUM [Concomitant]
     Active Substance: PIPERACILLIN SODIUM\TAZOBACTAM SODIUM
     Dosage: 4.5 MILLIGRAM DAILY; UNIT DOSE 4.5 GRAM, FREQUENCY TIME : 1 DAYS, THERAPY DURATION : 3 DAYS
     Route: 042
     Dates: start: 20180218, end: 20180220
  235. PIPERACILLIN SODIUM\TAZOBACTAM SODIUM [Concomitant]
     Active Substance: PIPERACILLIN SODIUM\TAZOBACTAM SODIUM
     Dosage: 13.4 GRAM DAILY; UNIT DOSE 13.4 GRAM, FREQUENCY TIME : 1 DAYS
     Route: 042
     Dates: start: 20150429
  236. PIPERACILLIN SODIUM\TAZOBACTAM SODIUM [Concomitant]
     Active Substance: PIPERACILLIN SODIUM\TAZOBACTAM SODIUM
     Dosage: 4.5 G, EVERY 0.33 DAY UNIT DOSE 4.5 GRAM
     Route: 042
     Dates: start: 20180220
  237. PIPERACILLIN SODIUM\TAZOBACTAM SODIUM [Concomitant]
     Active Substance: PIPERACILLIN SODIUM\TAZOBACTAM SODIUM
     Dosage: 4.5 GRAM DAILY;  (0.33 DAY),  UNIT DOSE 4.5 GRAM
     Route: 042
     Dates: start: 20180220
  238. PIPERACILLIN SODIUM\TAZOBACTAM SODIUM [Concomitant]
     Active Substance: PIPERACILLIN SODIUM\TAZOBACTAM SODIUM
     Dosage: UNIT DOSE 4.5 GRAM
     Route: 042
     Dates: start: 20150429
  239. PIPERACILLIN SODIUM\TAZOBACTAM SODIUM [Concomitant]
     Active Substance: PIPERACILLIN SODIUM\TAZOBACTAM SODIUM
     Dosage: 4.5 G EVERY 0.3 DAYS UNIT DOSE 4.5 GRAM
     Route: 042
     Dates: start: 20150429
  240. PIPERACILLIN SODIUM\TAZOBACTAM SODIUM [Concomitant]
     Active Substance: PIPERACILLIN SODIUM\TAZOBACTAM SODIUM
     Dosage: 13.5 GRAM DAILY; UNIT DOSE 13.5 GRAM
     Route: 042
     Dates: start: 20180218, end: 20180220
  241. PIPERACILLIN SODIUM\TAZOBACTAM SODIUM [Concomitant]
     Active Substance: PIPERACILLIN SODIUM\TAZOBACTAM SODIUM
     Dosage: 4.5 G, EVERY 0.33 DAY/Q8HR UNIT DOSE 4.5 GRAM
     Route: 042
     Dates: start: 20180218, end: 20180220
  242. PIPERACILLIN SODIUM\TAZOBACTAM SODIUM [Concomitant]
     Active Substance: PIPERACILLIN SODIUM\TAZOBACTAM SODIUM
     Dosage: 13.5 GRAM DAILY;  UNIT DOSE 13.5 GRAM, FREQUENCY TIME : 1 DAYS
     Route: 042
     Dates: start: 20150429
  243. PIPERACILLIN SODIUM\TAZOBACTAM SODIUM [Concomitant]
     Active Substance: PIPERACILLIN SODIUM\TAZOBACTAM SODIUM
     Dosage: 13.5 GRAM DAILY; 4.5 GRAM, TID UNIT DOSE 13.5 GRAM, THERAPY DURATION : 3  DAYS
     Route: 042
     Dates: start: 20180218, end: 20180220
  244. VASELINE PURE [Concomitant]
     Active Substance: PETROLATUM
     Indication: Epistaxis
     Dosage: UNK
     Route: 061
     Dates: start: 20181112
  245. VASELINE PURE [Concomitant]
     Active Substance: PETROLATUM
     Dosage: UNK
  246. VASELINE PURE [Concomitant]
     Active Substance: PETROLATUM
     Dosage: 1 TBSP (TABLESPOON
     Route: 061
     Dates: start: 20160816
  247. VASELINE PURE [Concomitant]
     Active Substance: PETROLATUM
     Dosage: UNK,FREQUENCY TIME : AS REQUIRED
     Route: 061
     Dates: start: 20160816
  248. VASELINE PURE [Concomitant]
     Active Substance: PETROLATUM
     Dosage: 1, FREQUENCY TIME : AS REQUIRED
     Route: 061
     Dates: start: 20181112
  249. XGEVA [Concomitant]
     Active Substance: DENOSUMAB
     Indication: Product used for unknown indication
     Dosage: 120 MG, QMO/EVERY 1 MONTH UNIT DOSE : 120 MILLIGRAM FREQUENCY 1  FREQUENCY TIME  1 MONTH
     Route: 058
     Dates: start: 20150623
  250. XGEVA [Concomitant]
     Active Substance: DENOSUMAB
     Dosage: 240 MILLIGRAM DAILY;  UNIT DOSE 240 MILLIGRAM,FREQUENCY TIME : 1 DAYS
     Dates: start: 20180115
  251. XGEVA [Concomitant]
     Active Substance: DENOSUMAB
     Dosage: 240 MILLIGRAM DAILY; 120 MG, BID UNIT DOSE 240 MILLIGRAM
     Route: 048
     Dates: start: 20180115
  252. XGEVA [Concomitant]
     Active Substance: DENOSUMAB
     Dosage: 240 MILLIGRAM DAILY; UNIT DOSE 120 MILLIGRAM
     Route: 048
     Dates: start: 20180115
  253. XGEVA [Concomitant]
     Active Substance: DENOSUMAB
     Dosage: 240 MILLIGRAM DAILY;  UNIT DOSE 120 MILLIGRAM
     Route: 048
  254. XGEVA [Concomitant]
     Active Substance: DENOSUMAB
     Dosage: 240 MILLIGRAM DAILY;  UNIT DOSE 240 MILLIGRAM, FREQUENCY TIME : 1 DAYS
     Route: 048
  255. XGEVA [Concomitant]
     Active Substance: DENOSUMAB
     Dosage: 120 MG, QM/EVERY 1 MONTH UNIT DOSE 120 MILLIGRAM,FREQUENCY: 1 , FREQUENCY TIME: 1 MONTHS
     Route: 058
     Dates: start: 20150623, end: 20170508
  256. ZOPICLONE [Concomitant]
     Active Substance: ZOPICLONE
     Indication: Sleep disorder
     Dosage: 3.75 MG, UNIT DOSE : 3.75 MG
     Route: 048
     Dates: start: 20151019
  257. ZOPICLONE [Concomitant]
     Active Substance: ZOPICLONE
     Dosage: 3.75 MILLIGRAM DAILY; AT NIGHT,  UNIT DOSE 3.75 MILLIGRAM
     Route: 048
     Dates: start: 20151019
  258. ZOPICLONE [Concomitant]
     Active Substance: ZOPICLONE
     Dosage: 3.75 MILLIGRAM DAILY;  AT NIGHT UNIT DOSE 3.75 MILLIGRAM
     Route: 048
     Dates: start: 20151019
  259. ZOPICLONE [Concomitant]
     Active Substance: ZOPICLONE
     Dosage: 3.75 MG UNIT DOSE 3.75 MILLIGRAM,FREQUENCY TIME : AS REQUIRED
     Route: 048
     Dates: start: 20151019
  260. ZOPICLONE [Concomitant]
     Active Substance: ZOPICLONE
     Dosage: 3.75 MG, UNIT DOSE 3.75 MILLIGRAM
     Route: 048
     Dates: start: 20151019
  261. AVEENO [Concomitant]
     Active Substance: DIMETHICONE\HOMOSALATE\OCTINOXATE\OCTISALATE\TITANIUM DIOXIDE
     Indication: Eczema
     Route: 061
     Dates: start: 20190114

REACTIONS (32)
  - Dry skin [Not Recovered/Not Resolved]
  - Glossodynia [Not Recovered/Not Resolved]
  - Night sweats [Not Recovered/Not Resolved]
  - Epistaxis [Not Recovered/Not Resolved]
  - Night sweats [Not Recovered/Not Resolved]
  - Sleep disorder [Unknown]
  - Arthralgia [Recovered/Resolved with Sequelae]
  - Arthralgia [Recovered/Resolved with Sequelae]
  - Gastritis [Recovered/Resolved]
  - Gastrooesophageal reflux disease [Recovered/Resolved]
  - Hypoaesthesia oral [Recovered/Resolved]
  - Mood swings [Recovered/Resolved]
  - Ovarian cyst [Recovered/Resolved]
  - Eczema [Recovered/Resolved]
  - Lethargy [Recovered/Resolved]
  - Decreased appetite [Recovered/Resolved]
  - Abdominal pain [Recovered/Resolved]
  - Constipation [Recovered/Resolved]
  - Diarrhoea [Recovered/Resolved]
  - Dry eye [Recovered/Resolved]
  - Dysgeusia [Recovered/Resolved]
  - Epistaxis [Recovered/Resolved]
  - Epistaxis [Recovered/Resolved]
  - Headache [Recovered/Resolved]
  - Nausea [Recovered/Resolved]
  - Nausea [Recovered/Resolved]
  - Neutropenic sepsis [Recovered/Resolved]
  - Pruritus [Recovered/Resolved]
  - Off label use [Unknown]
  - Intentional product misuse [Unknown]
  - Rash [Recovered/Resolved]
  - Eczema [Recovered/Resolved]

NARRATIVE: CASE EVENT DATE: 20150420
